FAERS Safety Report 21979499 (Version 1)
Quarter: 2023Q1

REPORT INFORMATION
  Report Type: Spontaneous
  Country: US (occurrence: None)
  Receive Date: 20230208
  Receipt Date: 20230208
  Transmission Date: 20230417
  Serious: No
  Sender: FDA-Public Use
  Company Number: None

PATIENT
  Age: 78 Year
  Sex: Female
  Weight: 71.76 kg

DRUGS (13)
  1. IBRANCE [Suspect]
     Active Substance: PALBOCICLIB
     Indication: Breast cancer female
     Dosage: OTHER FREQUENCY : 3W,1WOFF;?
     Route: 048
  2. ANASTROZOLE [Suspect]
     Active Substance: ANASTROZOLE
  3. ASPIRIN [Concomitant]
  4. CHLORTHALIDONE [Concomitant]
  5. PROBIOTIC [Concomitant]
  6. GABAPENTIN [Concomitant]
  7. IRBESARTAN [Concomitant]
  8. LEVOTHYROXINE [Concomitant]
  9. LIPITOR [Concomitant]
  10. POTASSIUM CHLORDE CRY ER [Concomitant]
  11. NEBIVOLOL [Concomitant]
  12. RESTASIS [Concomitant]
  13. VITAMIN D [Concomitant]

REACTIONS (2)
  - White blood cell count decreased [None]
  - Therapy interrupted [None]
